FAERS Safety Report 5345688-6 (Version None)
Quarter: 2007Q2

REPORT INFORMATION
  Report Type: 
  Country: None (occurrence: None)
  Receive Date: 20070425
  Receipt Date: 20061026
  Transmission Date: 20071010
  Serious: Yes (Other)
  Sender: FDA-Public Use
  Company Number: 2006-149728-NL

PATIENT
  Sex: Male

DRUGS (4)
  1. ZEMURON [Suspect]
     Indication: MEDICAL DEVICE REMOVAL
     Dosage: 100 MG DAILY INTRAVENOUS (NOS), INTUBATING DOSE
     Dates: start: 20061001, end: 20061001
  2. ZEMURON [Suspect]
     Indication: SPINAL CORD DISORDER
     Dosage: 100 MG DAILY INTRAVENOUS (NOS), INTUBATING DOSE
     Dates: start: 20061001, end: 20061001
  3. ZEMURON [Suspect]
     Indication: MEDICAL DEVICE REMOVAL
     Dosage: 50 MG DAILY INTRAVENOUS (NOS), MAINTENANCE DOSE
     Dates: start: 20061001, end: 20061001
  4. ZEMURON [Suspect]
     Indication: SPINAL CORD DISORDER
     Dosage: 50 MG DAILY INTRAVENOUS (NOS), MAINTENANCE DOSE
     Dates: start: 20061001, end: 20061001

REACTIONS (1)
  - NEUROMUSCULAR BLOCK PROLONGED [None]
